FAERS Safety Report 22093107 (Version 1)
Quarter: 2023Q1

REPORT INFORMATION
  Report Type: Report from Study
  Country: CA (occurrence: CA)
  Receive Date: 20230314
  Receipt Date: 20230314
  Transmission Date: 20230418
  Serious: Yes (Other)
  Sender: FDA-Public Use
  Company Number: CA-BAUSCH-BL-2022-023125

PATIENT
  Age: 43 Year
  Sex: Female

DRUGS (4)
  1. CONTRAVE [Suspect]
     Active Substance: BUPROPION HYDROCHLORIDE\NALTREXONE HYDROCHLORIDE
     Indication: Weight control
     Dosage: 90/8 MG , 1 TABLET QAM
     Route: 048
     Dates: start: 20220901, end: 20220907
  2. CONTRAVE [Suspect]
     Active Substance: BUPROPION HYDROCHLORIDE\NALTREXONE HYDROCHLORIDE
     Dosage: 90/8 MG , 1 TABLETS QAM, 1 TABLET QPM
     Route: 048
     Dates: start: 20220908, end: 20220914
  3. CONTRAVE [Suspect]
     Active Substance: BUPROPION HYDROCHLORIDE\NALTREXONE HYDROCHLORIDE
     Dosage: 90/8 MG , 2 TAB AM, 1 TAB PM
     Route: 048
     Dates: start: 20220915, end: 20220921
  4. CONTRAVE [Suspect]
     Active Substance: BUPROPION HYDROCHLORIDE\NALTREXONE HYDROCHLORIDE
     Dosage: 90/8 MG, 2 TABLETS QAM
     Route: 048
     Dates: start: 20220922

REACTIONS (8)
  - Foreign body in throat [Unknown]
  - Throat irritation [Unknown]
  - Euphoric mood [Not Recovered/Not Resolved]
  - Headache [Recovered/Resolved]
  - Patient dissatisfaction with treatment [Unknown]
  - Drug titration error [Unknown]
  - Inappropriate schedule of product administration [Unknown]
  - Product use complaint [Unknown]

NARRATIVE: CASE EVENT DATE: 20220901
